FAERS Safety Report 17818455 (Version 3)
Quarter: 2020Q4

REPORT INFORMATION
  Report Type: Report from Study
  Country: AR (occurrence: AR)
  Receive Date: 20200522
  Receipt Date: 20201019
  Transmission Date: 20210113
  Serious: Yes (Hospitalization, Other)
  Sender: FDA-Public Use
  Company Number: PHHY2018AR124288

PATIENT
  Age: 23 Year
  Sex: Female

DRUGS (2)
  1. GILENYA [Suspect]
     Active Substance: FINGOLIMOD HYDROCHLORIDE
     Indication: MULTIPLE SCLEROSIS
     Dosage: 1 IU, QD
     Route: 048
     Dates: start: 20140716
  2. GILENYA [Suspect]
     Active Substance: FINGOLIMOD HYDROCHLORIDE
     Dosage: 0.5 DF, QOD
     Route: 065

REACTIONS (13)
  - Decreased interest [Not Recovered/Not Resolved]
  - Withdrawal syndrome [Unknown]
  - White blood cell count decreased [Not Recovered/Not Resolved]
  - Product availability issue [Unknown]
  - Lymphocyte count decreased [Not Recovered/Not Resolved]
  - Drug abuse [Not Recovered/Not Resolved]
  - Depression [Unknown]
  - Headache [Recovered/Resolved]
  - Product dose omission issue [Unknown]
  - Seizure [Unknown]
  - Aggression [Unknown]
  - Prescribed underdose [Unknown]
  - Lymphocyte count decreased [Recovered/Resolved]

NARRATIVE: CASE EVENT DATE: 2017
